FAERS Safety Report 13496931 (Version 2)
Quarter: 2017Q2

REPORT INFORMATION
  Report Type: Report from Study
  Country: None (occurrence: NL)
  Receive Date: 20170428
  Receipt Date: 20170527
  Transmission Date: 20170830
  Serious: Yes (Hospitalization)
  Sender: FDA-Public Use
  Company Number: NL-ABBVIE-17K-114-1956897-00

PATIENT
  Age: 81 Year
  Sex: Female
  Weight: 61.4 kg

DRUGS (1)
  1. DUODOPA [Suspect]
     Active Substance: CARBIDOPA\LEVODOPA
     Indication: PARKINSON^S DISEASE
     Route: 050
     Dates: start: 20150412

REACTIONS (9)
  - Decreased appetite [Not Recovered/Not Resolved]
  - Fall [Recovered/Resolved]
  - Nightmare [Not Recovered/Not Resolved]
  - Spinal column injury [Not Recovered/Not Resolved]
  - Weight decreased [Not Recovered/Not Resolved]
  - Joint swelling [Recovering/Resolving]
  - Abnormal dreams [Not Recovered/Not Resolved]
  - Pain [Not Recovered/Not Resolved]
  - Hallucination [Recovered/Resolved]

NARRATIVE: CASE EVENT DATE: 201704
